FAERS Safety Report 18473340 (Version 8)
Quarter: 2021Q2

REPORT INFORMATION
  Report Type: Spontaneous
  Country: US (occurrence: US)
  Receive Date: 20201106
  Receipt Date: 20210423
  Transmission Date: 20210717
  Serious: Yes (Other)
  Sender: FDA-Public Use
  Company Number: US-DECIPHERA PHARMACEUTICALS LLC-2020-US-000597

PATIENT
  Sex: Male

DRUGS (2)
  1. QINLOCK [Suspect]
     Active Substance: RIPRETINIB
     Dosage: 150 MILLIGRAM, BID
     Route: 048
  2. QINLOCK [Suspect]
     Active Substance: RIPRETINIB
     Indication: GASTROINTESTINAL STROMAL TUMOUR
     Dosage: UNK
     Route: 048

REACTIONS (11)
  - Tumour compression [Unknown]
  - Tumour pain [Unknown]
  - Pain [Unknown]
  - Extra dose administered [Unknown]
  - Speech disorder [Not Recovered/Not Resolved]
  - Malaise [Unknown]
  - Hepatic neoplasm [Not Recovered/Not Resolved]
  - Neck mass [Unknown]
  - Drug ineffective [Unknown]
  - Neoplasm progression [Unknown]
  - Constipation [Unknown]
